FAERS Safety Report 6037567-6 (Version None)
Quarter: 2009Q1

REPORT INFORMATION
  Report Type: 
  Country: None (occurrence: None)
  Receive Date: 20090114
  Receipt Date: 20090105
  Transmission Date: 20090719
  Serious: Yes (Hospitalization, Other)
  Sender: FDA-Public Use
  Company Number: ZA-ELI_LILLY_AND_COMPANY-ZA200901000470

PATIENT
  Age: 66 Year
  Sex: Male

DRUGS (6)
  1. CYMBALTA [Suspect]
     Indication: MAJOR DEPRESSION
     Dosage: 60 MG, 2/D
     Route: 048
     Dates: start: 20081023, end: 20081201
  2. LAMOTRIGINE [Concomitant]
     Dates: end: 20081204
  3. ASPIRIN [Concomitant]
  4. EPILIM [Concomitant]
     Dates: end: 20081201
  5. PHENYTOIN SODIUM CAP [Concomitant]
     Dates: end: 20081201
  6. CLONAZEPAM [Concomitant]

REACTIONS (4)
  - EYE SWELLING [None]
  - HYPOTENSION [None]
  - RASH [None]
  - SWELLING [None]
